FAERS Safety Report 6095719-3 (Version None)
Quarter: 2009Q1

REPORT INFORMATION
  Report Type: 
  Country: None (occurrence: None)
  Receive Date: 20090227
  Receipt Date: 20080530
  Transmission Date: 20090719
  Serious: No
  Sender: FDA-Public Use
  Company Number: A0730349A

PATIENT
  Age: 50 Year
  Sex: Male

DRUGS (4)
  1. LAMICTAL [Suspect]
     Indication: BIPOLAR DISORDER
     Dosage: 25MG TWICE PER DAY
     Route: 048
     Dates: start: 20080417
  2. WELLBUTRIN XL [Concomitant]
  3. ADDERALL 10 [Concomitant]
  4. DIAZEPAM [Concomitant]

REACTIONS (1)
  - LYMPHADENOPATHY [None]
